FAERS Safety Report 10009461 (Version 2)
Quarter: 2014Q1

REPORT INFORMATION
  Report Type: Spontaneous
  Country: US (occurrence: US)
  Receive Date: 20140313
  Receipt Date: 20140313
  Transmission Date: 20141002
  Serious: No
  Sender: FDA-Public Use
  Company Number: US-INCYTE CORPORATION-2012IN001322

PATIENT
  Age: 71 Year
  Sex: Female
  Weight: 68.93 kg

DRUGS (11)
  1. JAKAFI [Suspect]
     Indication: MYELOFIBROSIS
     Dosage: 20 MG, BID
     Route: 048
     Dates: start: 20120119
  2. NORCO [Concomitant]
  3. XYZAL [Concomitant]
  4. ATARAX [Concomitant]
  5. AMITRIPTYLINE [Concomitant]
  6. CETAPHIL [Concomitant]
  7. TRIAMCINOLONE [Concomitant]
     Route: 061
  8. ARANESP [Concomitant]
  9. ONDANSETRON [Concomitant]
  10. LEVEMIR [Concomitant]
     Dosage: 40 IU, QD (AM)
  11. LEVEMIR [Concomitant]
     Dosage: 30 IU, QD (PM)

REACTIONS (4)
  - Bone pain [Not Recovered/Not Resolved]
  - Weight increased [Not Recovered/Not Resolved]
  - Nausea [Not Recovered/Not Resolved]
  - Vomiting [Not Recovered/Not Resolved]
